FAERS Safety Report 16277612 (Version 11)
Quarter: 2021Q2

REPORT INFORMATION
  Report Type: Spontaneous
  Country: US (occurrence: US)
  Receive Date: 20190506
  Receipt Date: 20210503
  Transmission Date: 20210716
  Serious: No
  Sender: FDA-Public Use
  Company Number: US-PFIZER INC-2019189818

PATIENT
  Age: 47 Year
  Sex: Female
  Weight: 71 kg

DRUGS (12)
  1. LETROZOLE. [Concomitant]
     Active Substance: LETROZOLE
     Dosage: 2.5 MG, 1X/DAY
     Route: 048
  2. VITAMIN C [Concomitant]
     Active Substance: ASCORBIC ACID
     Dosage: UNK
  3. CETRIZINE [Concomitant]
     Active Substance: CETIRIZINE HYDROCHLORIDE
     Indication: HYPERSENSITIVITY
     Dosage: UNK
  4. VITAMIN B12 [Concomitant]
     Active Substance: CYANOCOBALAMIN
     Dosage: UNK
  5. IBRANCE [Suspect]
     Active Substance: PALBOCICLIB
     Indication: BREAST CANCER METASTATIC
     Dosage: 125 MG, CYCLIC [HAVE A PILL FOR TOMORROW AND THEN I GO ON MY 7 DAYS OFF]
     Route: 048
  6. IBRANCE [Suspect]
     Active Substance: PALBOCICLIB
     Indication: BREAST CANCER FEMALE
     Dosage: 125 MG, CYCLIC (ONE TABLET DAILY FOR 21 DAYS AND THEN OFF FOR 7)
     Dates: start: 201904
  7. ZARXIO [Concomitant]
     Active Substance: FILGRASTIM-SNDZ
     Dosage: UNK
  8. IBRANCE [Suspect]
     Active Substance: PALBOCICLIB
     Dosage: 100 MG, CYCLIC (21 DAY?7DAYS OFF)
     Dates: start: 20190411
  9. IBRANCE [Suspect]
     Active Substance: PALBOCICLIB
     Dosage: UNK
     Dates: end: 2019
  10. IBRANCE [Suspect]
     Active Substance: PALBOCICLIB
     Dosage: 125 MG
  11. IBRANCE [Suspect]
     Active Substance: PALBOCICLIB
     Dosage: 100 MG, CYCLIC (100 MG FOR 21D THEN 7D OFF)
     Dates: start: 20200605
  12. NEUPOGEN [Concomitant]
     Active Substance: FILGRASTIM
     Dosage: UNK, (THREE DAILY SHOT TWO OF ZARXIO, ONE OF NEUPOGEN)

REACTIONS (11)
  - Feeling abnormal [Not Recovered/Not Resolved]
  - Hot flush [Unknown]
  - Fatigue [Unknown]
  - Memory impairment [Not Recovered/Not Resolved]
  - White blood cell count increased [Unknown]
  - Intentional dose omission [Unknown]
  - Blood count abnormal [Unknown]
  - White blood cell count decreased [Not Recovered/Not Resolved]
  - Asthenia [Unknown]
  - Decreased interest [Unknown]
  - Condition aggravated [Not Recovered/Not Resolved]

NARRATIVE: CASE EVENT DATE: 20201108
